FAERS Safety Report 7996491-X (Version None)
Quarter: 2011Q4

REPORT INFORMATION
  Report Type: 
  Country: None (occurrence: None)
  Receive Date: 20111220
  Receipt Date: 20111212
  Transmission Date: 20120403
  Serious: Yes (Other)
  Sender: FDA-Public Use
  Company Number: US-ASTRAZENECA-2011SE75424

PATIENT
  Age: 43 Year
  Sex: Female
  Weight: 64.9 kg

DRUGS (3)
  1. LITHIUM CARBONATE [Concomitant]
  2. SEROQUEL XR [Suspect]
     Route: 048
  3. SEROQUEL XR [Suspect]
     Indication: BIPOLAR II DISORDER
     Route: 048

REACTIONS (4)
  - BLOOD GLUCOSE DECREASED [None]
  - LOSS OF CONSCIOUSNESS [None]
  - FOOD CRAVING [None]
  - FALL [None]
